FAERS Safety Report 9852792 (Version 1)
Quarter: 2014Q1

REPORT INFORMATION
  Report Type: Spontaneous
  Country: US (occurrence: None)
  Receive Date: 20140128
  Receipt Date: 20140128
  Transmission Date: 20141002
  Serious: Yes (Life-Threatening)
  Sender: FDA-Public Use
  Company Number: None

PATIENT
  Age: 69 Year
  Sex: Male
  Weight: 65.5 kg

DRUGS (1)
  1. CETUXIMAB [Suspect]
     Indication: BASAL CELL CARCINOMA
     Route: 042
     Dates: start: 20120723, end: 20120723

REACTIONS (2)
  - Anaphylactic reaction [None]
  - Hypotension [None]
